FAERS Safety Report 6919745-4 (Version None)
Quarter: 2010Q3

REPORT INFORMATION
  Report Type: 
  Country: None (occurrence: None)
  Receive Date: 20100811
  Receipt Date: 20100804
  Transmission Date: 20110219
  Serious: Yes (Other)
  Sender: FDA-Public Use
  Company Number: FR-JNJFOC-20100501474

PATIENT
  Age: 17 Year
  Sex: Male
  Weight: 77 kg

DRUGS (3)
  1. RISPERDAL [Suspect]
     Indication: PSYCHOTIC DISORDER
     Dosage: 2 INTAKES PER DAY: 2 MG AND 1 MG
     Route: 048
  2. LEPTICUR [Concomitant]
     Route: 048
  3. TERCIAN [Concomitant]
     Route: 048

REACTIONS (1)
  - BLOOD BILIRUBIN UNCONJUGATED INCREASED [None]
